FAERS Safety Report 23080204 (Version 1)
Quarter: 2023Q4

REPORT INFORMATION
  Report Type: Spontaneous
  Country: US (occurrence: US)
  Receive Date: 20231018
  Receipt Date: 20231018
  Transmission Date: 20240109
  Serious: No
  Sender: FDA-Public Use
  Company Number: US-BRISTOL-MYERS SQUIBB COMPANY-2023-146466

PATIENT
  Age: 87 Year
  Sex: Male

DRUGS (2)
  1. ELIQUIS [Suspect]
     Active Substance: APIXABAN
     Indication: Pulmonary embolism
     Dosage: DOSE : 1 TABLET;     FREQ : TWICE DAILY
     Route: 048
  2. ELIQUIS [Suspect]
     Active Substance: APIXABAN
     Dosage: DOSE : 1 TABLET;     FREQ : TWICE DAILY
     Route: 048

REACTIONS (3)
  - Haemoglobin decreased [Unknown]
  - Occult blood [Unknown]
  - Haemorrhoids [Unknown]
